FAERS Safety Report 14785246 (Version 3)
Quarter: 2018Q2

REPORT INFORMATION
  Report Type: Spontaneous
  Country: DE (occurrence: DE)
  Receive Date: 20180420
  Receipt Date: 20180525
  Transmission Date: 20180711
  Serious: Yes (Death, Other)
  Sender: FDA-Public Use
  Company Number: DE-PFIZER INC-2018158103

PATIENT
  Age: 73 Year
  Sex: Female

DRUGS (1)
  1. BESPONSA [Suspect]
     Active Substance: INOTUZUMAB OZOGAMICIN
     Indication: ACUTE LYMPHOCYTIC LEUKAEMIA
     Dosage: 1.8 MG/M2, CYCLIC
     Dates: start: 20180412

REACTIONS (7)
  - Neoplasm recurrence [Unknown]
  - Encephalitis [Unknown]
  - Multiple organ dysfunction syndrome [Fatal]
  - Body temperature increased [Unknown]
  - Depressed level of consciousness [Unknown]
  - White blood cell count decreased [Unknown]
  - Headache [Unknown]

NARRATIVE: CASE EVENT DATE: 201804
